FAERS Safety Report 18041020 (Version 1)
Quarter: 2020Q3

REPORT INFORMATION
  Report Type: Report from Study
  Country: IT (occurrence: IT)
  Receive Date: 20200717
  Receipt Date: 20200717
  Transmission Date: 20201103
  Serious: Yes (Hospitalization, Other)
  Sender: FDA-Public Use
  Company Number: IT-ACCORD-190090

PATIENT

DRUGS (2)
  1. MITOMYCIN. [Suspect]
     Active Substance: MITOMYCIN
     Indication: PSEUDOMYXOMA PERITONEI
     Dosage: 3.3 MG/M2/L
  2. CISPLATIN. [Suspect]
     Active Substance: CISPLATIN
     Indication: PSEUDOMYXOMA PERITONEI
     Dosage: 25 MG/M2/L AT 41 DEGREE C FOR 60 MIN

REACTIONS (2)
  - Staphylococcal infection [Unknown]
  - Off label use [Unknown]
